FAERS Safety Report 6724307-8 (Version None)
Quarter: 2010Q2

REPORT INFORMATION
  Report Type: 
  Country: None (occurrence: None)
  Receive Date: 20100513
  Receipt Date: 20100504
  Transmission Date: 20101027
  Serious: Yes (Death)
  Sender: FDA-Public Use
  Company Number: US-PURDUE-USA-2009-0039731

PATIENT
  Age: 77 Year
  Sex: Male

DRUGS (16)
  1. OXYCONTIN [Suspect]
     Indication: LUNG NEOPLASM MALIGNANT
     Dosage: 20 MG, DAILY
     Route: 048
     Dates: start: 20090703
  2. OXYCONTIN [Suspect]
     Dosage: 40 MG, DAILY
     Dates: start: 20090705
  3. OXYCONTIN [Suspect]
     Dosage: 60 MG, DAILY
     Route: 048
     Dates: start: 20090708, end: 20090710
  4. NEORAL [Concomitant]
     Indication: DRUG USE FOR UNKNOWN INDICATION
  5. PREDNISOLONE [Concomitant]
     Indication: DRUG USE FOR UNKNOWN INDICATION
  6. TAKEPRON [Concomitant]
     Indication: DRUG USE FOR UNKNOWN INDICATION
  7. COTRIM [Concomitant]
     Indication: DRUG USE FOR UNKNOWN INDICATION
  8. NU-LOTAN [Concomitant]
     Indication: DRUG USE FOR UNKNOWN INDICATION
  9. PLAVIX [Concomitant]
  10. BONALON                            /01220301/ [Concomitant]
     Indication: DRUG USE FOR UNKNOWN INDICATION
  11. ASTOMIN                            /00426502/ [Concomitant]
     Indication: DRUG USE FOR UNKNOWN INDICATION
  12. MAGNESIUM SULFATE [Concomitant]
     Indication: DRUG USE FOR UNKNOWN INDICATION
  13. CONIEL [Concomitant]
     Indication: DRUG USE FOR UNKNOWN INDICATION
  14. THEO-DUR [Concomitant]
     Indication: DRUG USE FOR UNKNOWN INDICATION
  15. LIPITOR [Concomitant]
     Indication: DRUG USE FOR UNKNOWN INDICATION
  16. ADVAIR DISKUS 100/50 [Concomitant]
     Indication: DRUG USE FOR UNKNOWN INDICATION

REACTIONS (3)
  - NAUSEA [None]
  - PNEUMONIA ASPIRATION [None]
  - VOMITING [None]
